FAERS Safety Report 18319004 (Version 1)
Quarter: 2020Q3

REPORT INFORMATION
  Report Type: Spontaneous
  Country: FR (occurrence: FR)
  Receive Date: 20200928
  Receipt Date: 20200928
  Transmission Date: 20201103
  Serious: Yes (Hospitalization)
  Sender: FDA-Public Use
  Company Number: FR-SUN PHARMACEUTICAL INDUSTRIES LTD-2020RR-262087

PATIENT
  Age: 55 Year
  Sex: Male
  Weight: 69 kg

DRUGS (6)
  1. LANSOPRAZOLE. [Suspect]
     Active Substance: LANSOPRAZOLE
     Indication: PROPHYLAXIS AGAINST GASTROINTESTINAL ULCER
     Dosage: 30 MILLIGRAM, DAILY
     Route: 048
     Dates: start: 20190729, end: 20190805
  2. MEROPENEM ANHYDRE [Suspect]
     Active Substance: MEROPENEM
     Indication: INFECTION
     Dosage: ()
     Route: 041
     Dates: start: 20190803, end: 20190806
  3. PREGABALIN. [Suspect]
     Active Substance: PREGABALIN
     Indication: NEURALGIA
     Dosage: 150 MILLIGRAM, DAILY
     Route: 048
     Dates: start: 20190729, end: 20190803
  4. IOMERON [Suspect]
     Active Substance: IOMEPROL
     Indication: COMPUTERISED TOMOGRAM
     Dosage: (1)
     Route: 041
     Dates: start: 20190724, end: 20190724
  5. TRAMADOL BASE [Concomitant]
     Active Substance: TRAMADOL
     Indication: PRODUCT USED FOR UNKNOWN INDICATION
     Dosage: ()
     Route: 048
  6. BACTRIM [Suspect]
     Active Substance: SULFAMETHOXAZOLE\TRIMETHOPRIM
     Indication: INFECTION
     Dosage: 1 DOSAGE FORM, DAILY
     Route: 048
     Dates: start: 20190725, end: 20190731

REACTIONS (1)
  - Drug reaction with eosinophilia and systemic symptoms [Recovered/Resolved]

NARRATIVE: CASE EVENT DATE: 20190806
